FAERS Safety Report 18432931 (Version 2)
Quarter: 2020Q4

REPORT INFORMATION
  Report Type: Spontaneous
  Country: BR (occurrence: BR)
  Receive Date: 20201027
  Receipt Date: 20201207
  Transmission Date: 20210114
  Serious: Yes (Other)
  Sender: FDA-Public Use
  Company Number: BR-ABBVIE-20P-020-3620289-00

PATIENT
  Age: 44 Year
  Sex: Female
  Weight: 52 kg

DRUGS (7)
  1. DEPAKENE [Suspect]
     Active Substance: VALPROIC ACID
     Dosage: UNIT/DAILY DOSE:1 TAB THIRD TIME USE 3 DAYS; DISCONTINUED ;CHANGED TO DIVALPROEX SODIUM
     Route: 048
     Dates: start: 202004, end: 202004
  2. RIVOTRIL [Concomitant]
     Active Substance: CLONAZEPAM
     Indication: DEPRESSION
  3. DEPAKENE [Suspect]
     Active Substance: VALPROIC ACID
     Indication: BIPOLAR DISORDER
     Dosage: UNIT/DAILY DOSE:1 TABLET; FIRST TIME WAS USED; USED FOR 3 DAYS;DISCONTINUED DUE TO EVENTS
     Route: 048
     Dates: start: 202003, end: 202003
  4. RIVOTRIL [Concomitant]
     Active Substance: CLONAZEPAM
     Indication: EMOTIONAL DISORDER
     Dosage: USED 3 OR 4 DROPS IN MOUTH OR DILUTED WITH WATER; SINCE 9 MONTHS AGO
     Route: 048
     Dates: start: 2020
  5. RIVOTRIL [Concomitant]
     Active Substance: CLONAZEPAM
     Indication: PANIC ATTACK
  6. BARISTAR [Concomitant]
     Indication: VITAMIN SUPPLEMENTATION
     Dosage: DAILY DOSE: 1 CAPSULE; ADMINISTERED WITH WATER; SINCE LEAVING THE HOSPITAL
     Route: 048
     Dates: start: 2018
  7. DEPAKENE [Suspect]
     Active Substance: VALPROIC ACID
     Dosage: UNIT DOSE:1 TAB,DAILY DOSE:1 TAB;SECOND TIME USED FOR 3 DAYS;DISCONTINUED DUE TO EVENTS
     Route: 048
     Dates: start: 202004, end: 202004

REACTIONS (9)
  - Condition aggravated [Unknown]
  - Drug ineffective [Unknown]
  - Feeling abnormal [Recovered/Resolved]
  - Suicidal ideation [Recovered/Resolved]
  - Negative thoughts [Recovered/Resolved]
  - Product use in unapproved indication [Unknown]
  - Product complaint [Unknown]
  - Malaise [Recovered/Resolved]
  - Bipolar disorder [Unknown]
